FAERS Safety Report 9419909 (Version 1)
Quarter: 2013Q3

REPORT INFORMATION
  Report Type: Spontaneous
  Country: US (occurrence: US)
  Receive Date: 20130725
  Receipt Date: 20130725
  Transmission Date: 20140515
  Serious: No
  Sender: FDA-Public Use
  Company Number: US-BAYER-2013-090016

PATIENT
  Sex: Male

DRUGS (1)
  1. FINACEA [Suspect]

REACTIONS (2)
  - Skin tightness [None]
  - Skin disorder [None]
